FAERS Safety Report 16303866 (Version 3)
Quarter: 2019Q3

REPORT INFORMATION
  Report Type: Spontaneous
  Country: DE (occurrence: DE)
  Receive Date: 20190513
  Receipt Date: 20190720
  Transmission Date: 20191004
  Serious: Yes (Death, Hospitalization)
  Sender: FDA-Public Use
  Company Number: DE-ROCHE-2317886

PATIENT
  Age: 42 Year
  Sex: Male

DRUGS (2)
  1. TICK-BORNE ENCEPHALITIS VACCINE [Concomitant]
     Active Substance: TICK-BORNE ENCEPHALITIS VACCINE
     Indication: PRODUCT USED FOR UNKNOWN INDICATION
     Dosage: UNK
     Route: 065
  2. XOLAIR [Suspect]
     Active Substance: OMALIZUMAB
     Indication: ASTHMA
     Dosage: (TREATED WITH XOLAIR FOR 7-8 YEARS)
     Route: 058

REACTIONS (2)
  - Vasculitis [Fatal]
  - Eosinophilic granulomatosis with polyangiitis [Fatal]
